FAERS Safety Report 23063819 (Version 2)
Quarter: 2023Q4

REPORT INFORMATION
  Report Type: Spontaneous
  Country: US (occurrence: US)
  Receive Date: 20231013
  Receipt Date: 20231115
  Transmission Date: 20240110
  Serious: No
  Sender: FDA-Public Use
  Company Number: US-LEADINGPHARMA-US-2023LEASPO00285

PATIENT
  Age: 71 Year
  Sex: Female

DRUGS (1)
  1. LORAZEPAM [Suspect]
     Active Substance: LORAZEPAM
     Indication: Product used for unknown indication
     Route: 048
     Dates: start: 20230927, end: 20230927

REACTIONS (4)
  - Feeling abnormal [Unknown]
  - Dysgeusia [Unknown]
  - Product taste abnormal [Unknown]
  - Product odour abnormal [Unknown]

NARRATIVE: CASE EVENT DATE: 20230927
